FAERS Safety Report 10783610 (Version 1)
Quarter: 2015Q1

REPORT INFORMATION
  Report Type: Spontaneous
  Country: MY (occurrence: MY)
  Receive Date: 20150210
  Receipt Date: 20150210
  Transmission Date: 20150721
  Serious: Yes (Other)
  Sender: FDA-Public Use
  Company Number: ALCN2015MY001071

PATIENT
  Age: 2 Year
  Sex: Female

DRUGS (5)
  1. PRED FORTE [Concomitant]
     Active Substance: PREDNISOLONE ACETATE
     Indication: IRIDOCYCLITIS
     Dosage: UNK
     Route: 047
  2. TIMOLOL [Suspect]
     Active Substance: TIMOLOL
     Indication: IRIDOCYCLITIS
     Dosage: 1 GTT, BID
     Route: 047
  3. PREDNISOLONE. [Concomitant]
     Active Substance: PREDNISOLONE
     Indication: IRIDOCYCLITIS
     Dosage: 1 MG/KG, UNK
     Route: 048
  4. TRIESENCE [Suspect]
     Active Substance: TRIAMCINOLONE ACETONIDE
     Indication: IRIDOCYCLITIS
     Dosage: 20 MG, QD
     Route: 065
  5. TROPICAMIDE. [Suspect]
     Active Substance: TROPICAMIDE
     Indication: IRIDOCYCLITIS
     Dosage: 1 GTT, BID
     Route: 047

REACTIONS (2)
  - Conjunctival ulcer [Recovered/Resolved]
  - Conjunctival haemorrhage [Recovered/Resolved]
